FAERS Safety Report 8619378-8 (Version None)
Quarter: 2012Q3

REPORT INFORMATION
  Report Type: 
  Country: None (occurrence: None)
  Receive Date: 20120824
  Receipt Date: 20120816
  Transmission Date: 20120928
  Serious: Yes (Hospitalization)
  Sender: FDA-Public Use
  Company Number: US-US-EMD SERONO, INC.-7049460

PATIENT
  Sex: Female
  Weight: 67 kg

DRUGS (2)
  1. PREMARIN [Concomitant]
     Indication: MENOPAUSE
  2. REBIF [Suspect]
     Indication: MULTIPLE SCLEROSIS
     Route: 058
     Dates: start: 20081212

REACTIONS (2)
  - FATIGUE [None]
  - BREAST CANCER [None]
